FAERS Safety Report 6093357-X (Version None)
Quarter: 2009Q1

REPORT INFORMATION
  Report Type: 
  Country: None (occurrence: None)
  Receive Date: 20090225
  Receipt Date: 20090225
  Transmission Date: 20090719
  Serious: Yes (Hospitalization, Other)
  Sender: FDA-Public Use
  Company Number: None

PATIENT
  Sex: Male

DRUGS (1)
  1. CLOZAPINE [Suspect]
     Indication: OSTEOARTHRITIS
     Dosage: 100MG BID PO
     Route: 048
     Dates: start: 20090210

REACTIONS (5)
  - NIGHTMARE [None]
  - SKIN EXFOLIATION [None]
  - SPEECH DISORDER [None]
  - TACHYPHRENIA [None]
  - THERAPEUTIC RESPONSE UNEXPECTED WITH DRUG SUBSTITUTION [None]
